FAERS Safety Report 6120251-8 (Version None)
Quarter: 2009Q1

REPORT INFORMATION
  Report Type: 
  Country: None (occurrence: None)
  Receive Date: 20090312
  Receipt Date: 20090224
  Transmission Date: 20090719
  Serious: No
  Sender: FDA-Public Use
  Company Number: 8043496

PATIENT
  Age: 73 Year
  Sex: Female
  Weight: 53.52 kg

DRUGS (10)
  1. KEPPRA [Suspect]
     Indication: MYOCLONUS
     Dosage: /D PO
     Route: 048
     Dates: start: 20081001
  2. KEPPRA [Suspect]
     Indication: MYOCLONUS
     Dosage: 3000 MG /D PO
     Route: 048
     Dates: start: 20081201
  3. KEPPRA [Suspect]
     Indication: MYOCLONUS
     Dosage: /D PO
     Route: 048
  4. ATENOLOL [Concomitant]
  5. FENOFIBRATE [Concomitant]
  6. PREVACID [Concomitant]
  7. RECLAST [Concomitant]
  8. VITAMINS [Concomitant]
  9. TUMS [Concomitant]
  10. DILAUDID [Concomitant]

REACTIONS (6)
  - AGITATION [None]
  - ANXIETY [None]
  - APATHY [None]
  - DEPRESSION [None]
  - FATIGUE [None]
  - GAIT DISTURBANCE [None]
